FAERS Safety Report 19055549 (Version 1)
Quarter: 2021Q1

REPORT INFORMATION
  Report Type: Spontaneous
  Country: US (occurrence: US)
  Receive Date: 20210325
  Receipt Date: 20210325
  Transmission Date: 20210420
  Serious: Yes (Other)
  Sender: FDA-Public Use
  Company Number: US-TILLOMED LABORATORIES LTD.-2021-EPL-000888

PATIENT
  Sex: Female

DRUGS (2)
  1. INDOMETHACIN. [Suspect]
     Active Substance: INDOMETHACIN
     Indication: TRICUSPID VALVE DISEASE
  2. INDOMETHACIN. [Suspect]
     Active Substance: INDOMETHACIN
     Indication: EBSTEIN^S ANOMALY
     Dosage: 100 MG 2 TO 4 TIMES DAILY

REACTIONS (4)
  - Oligohydramnios [Unknown]
  - Contraindicated product administered [Unknown]
  - Off label use [Unknown]
  - Maternal exposure during pregnancy [Unknown]
